FAERS Safety Report 24955914 (Version 1)
Quarter: 2025Q1

REPORT INFORMATION
  Report Type: Spontaneous
  Country: GB (occurrence: GB)
  Receive Date: 20250211
  Receipt Date: 20250211
  Transmission Date: 20250409
  Serious: Yes (Other)
  Sender: EMD SERONO INC
  Company Number: None

PATIENT
  Sex: Male

DRUGS (1)
  1. AVELUMAB [Suspect]
     Active Substance: AVELUMAB
     Indication: Bladder transitional cell carcinoma

REACTIONS (4)
  - Carpal tunnel syndrome [Recovered/Resolved]
  - Arthralgia [Recovered/Resolved]
  - Hepatitis [Recovered/Resolved]
  - Rash macular [Recovered/Resolved]
